FAERS Safety Report 10024300 (Version 1)
Quarter: 2014Q1

REPORT INFORMATION
  Report Type: Spontaneous
  Country: US (occurrence: US)
  Receive Date: 20140320
  Receipt Date: 20140320
  Transmission Date: 20141002
  Serious: No
  Sender: FDA-Public Use
  Company Number: US-009507513-1403USA000531

PATIENT
  Sex: Female

DRUGS (3)
  1. CLARITIN LIQUIGELS [Suspect]
     Indication: PROPHYLAXIS
     Dosage: UNK, UNKNOWN
     Route: 048
     Dates: start: 20140218
  2. CLARITIN LIQUIGELS [Suspect]
     Dosage: 10 MG, ONCE
     Route: 048
     Dates: start: 20140219
  3. TAXOL [Concomitant]
     Indication: PRODUCT USED FOR UNKNOWN INDICATION
     Dosage: UNK, UNKNOWN

REACTIONS (2)
  - Overdose [Unknown]
  - Off label use [Unknown]
